FAERS Safety Report 7352605-6 (Version None)
Quarter: 2011Q1

REPORT INFORMATION
  Report Type: 
  Country: None (occurrence: None)
  Receive Date: 20110315
  Receipt Date: 20110311
  Transmission Date: 20110831
  Serious: Yes (Other)
  Sender: FDA-Public Use
  Company Number: US-ABBOTT-10P-163-0691407-00

PATIENT
  Sex: Male

DRUGS (5)
  1. TRUVADA [Suspect]
     Indication: PRODUCT USED FOR UNKNOWN INDICATION
  2. TRAVADA [Concomitant]
     Indication: PRODUCT USED FOR UNKNOWN INDICATION
  3. NORVIR [Suspect]
     Indication: PRODUCT USED FOR UNKNOWN INDICATION
  4. REYATAZ [Suspect]
     Indication: PRODUCT USED FOR UNKNOWN INDICATION
  5. REYATAZ [Concomitant]

REACTIONS (2)
  - PANCREATITIS [None]
  - HEPATIC ENZYME INCREASED [None]
